FAERS Safety Report 4451506-0 (Version None)
Quarter: 2004Q3

REPORT INFORMATION
  Report Type: 
  Country: None (occurrence: None)
  Receive Date: 20040915
  Receipt Date: 20040902
  Transmission Date: 20050211
  Serious: Yes (Death)
  Sender: FDA-Public Use
  Company Number: USA-2004-0016213

PATIENT
  Age: 44 Year
  Sex: Male
  Weight: 99.8 kg

DRUGS (2)
  1. OXYCONTIN [Suspect]
     Dosage: UNK MG
  2. MORPHINE SULFATE [Suspect]

REACTIONS (23)
  - ACCIDENT [None]
  - ALCOHOLISM [None]
  - AORTIC ATHEROSCLEROSIS [None]
  - ARTERIOSCLEROSIS [None]
  - ASPIRATION [None]
  - ATHEROSCLEROSIS [None]
  - BRAIN OEDEMA [None]
  - CARDIO-RESPIRATORY ARREST [None]
  - CARDIOMEGALY [None]
  - CEREBRAL ISCHAEMIA [None]
  - CHOKING [None]
  - CHOLESTEROSIS [None]
  - COMA [None]
  - CORONARY ARTERY STENOSIS [None]
  - DRUG TOXICITY [None]
  - HAEMANGIOMA [None]
  - HEPATIC STEATOSIS [None]
  - HEPATOMEGALY [None]
  - LIVER DISORDER [None]
  - LUNG DISORDER [None]
  - LUNG HYPERINFLATION [None]
  - MULTIPLE DRUG OVERDOSE [None]
  - SPLENOMEGALY [None]
